FAERS Safety Report 4517779-0 (Version None)
Quarter: 2004Q4

REPORT INFORMATION
  Report Type: 
  Country: None (occurrence: None)
  Receive Date: 20041130
  Receipt Date: 20041119
  Transmission Date: 20050328
  Serious: Yes (Other)
  Sender: FDA-Public Use
  Company Number: 2004-UK-01226UK

PATIENT
  Age: 69 Year
  Sex: Male

DRUGS (5)
  1. SPIRIVA [Suspect]
     Indication: CHRONIC OBSTRUCTIVE AIRWAYS DISEASE
     Dosage: 18 MCG (18 MCG), IH
     Route: 055
     Dates: end: 20041019
  2. SILDENAFIL (SILDENAFIL) [Concomitant]
  3. IPRATROPIUM BROMIDE [Concomitant]
  4. SALBUTAMOL (SALBUTAMOL) [Concomitant]
  5. SERETIDE (FLUTICASONE) [Concomitant]

REACTIONS (3)
  - ERYTHEMA [None]
  - EYE PAIN [None]
  - SWELLING FACE [None]
